FAERS Safety Report 6052085-7 (Version None)
Quarter: 2009Q1

REPORT INFORMATION
  Report Type: 
  Country: None (occurrence: None)
  Receive Date: 20090126
  Receipt Date: 20090115
  Transmission Date: 20090719
  Serious: Yes (Other)
  Sender: FDA-Public Use
  Company Number: US-ROXANE LABORATORIES, INC.-2009-RO-00071RO

PATIENT
  Age: 49 Year
  Sex: Female

DRUGS (10)
  1. PREDNISONE [Suspect]
     Indication: IMMUNOSUPPRESSANT DRUG THERAPY
     Dosage: 5MG
  2. CELLCEPT [Suspect]
     Indication: IMMUNOSUPPRESSANT DRUG THERAPY
     Dosage: 1500MG
  3. PROGRAF [Suspect]
     Indication: IMMUNOSUPPRESSANT DRUG THERAPY
     Dosage: 1MG
  4. PROGRAF [Suspect]
     Dosage: 3MG
  5. CARBOPLATIN [Suspect]
     Indication: CHEMOTHERAPY
     Route: 042
  6. TAXOTERE [Suspect]
     Indication: CHEMOTHERAPY
     Route: 042
  7. TAXOL [Suspect]
     Indication: CHEMOTHERAPY
     Route: 042
  8. TOPOTECAN [Suspect]
     Indication: CHEMOTHERAPY
     Route: 042
  9. PEGFILGRASTIM [Concomitant]
     Indication: PROPHYLAXIS
     Route: 058
  10. DARBEPOETIN ALFA [Concomitant]
     Indication: ANAEMIA

REACTIONS (5)
  - ANAEMIA [None]
  - ENDOMETRIAL CANCER [None]
  - LYMPHADENOPATHY [None]
  - OVARIAN CANCER [None]
  - PANCREATIC PSEUDOCYST [None]
